FAERS Safety Report 14967057 (Version 1)
Quarter: 2018Q2

REPORT INFORMATION
  Report Type: Spontaneous
  Country: KR (occurrence: KR)
  Receive Date: 20180604
  Receipt Date: 20180604
  Transmission Date: 20180711
  Serious: Yes (Hospitalization, Other)
  Sender: FDA-Public Use
  Company Number: KR-CHEPLA-C20180224

PATIENT
  Age: 35 Year
  Sex: Male

DRUGS (4)
  1. IDARUBICIN [Suspect]
     Active Substance: IDARUBICIN
     Indication: ACUTE PROMYELOCYTIC LEUKAEMIA
     Dosage: IDARUBICIN AS REMISSION INDUCTION THERAPY, 2X CONSOLIDATION THERAPY
  2. METHOTREXATE. [Concomitant]
     Active Substance: METHOTREXATE
     Indication: ACUTE PROMYELOCYTIC LEUKAEMIA
     Dosage: METHOTREXATE AND CYTARABINE AS INTRATHECAL CHEMOTHERAPY
     Route: 037
  3. ATRA [Suspect]
     Active Substance: TRETINOIN
     Dosage: MAINTENANCE THERAPY, ATRA AS REMISSION INDUCTION THERAPY, 2X CONSOLIDATION THERAPY
  4. CYTARABINE. [Concomitant]
     Active Substance: CYTARABINE
     Indication: ACUTE PROMYELOCYTIC LEUKAEMIA
     Dosage: METHOTREXATE AND CYTARABINE AS INTRATHECAL CHEMOTHERAPY
     Route: 037

REACTIONS (5)
  - Chloroma [Recovered/Resolved]
  - External ear pain [Recovered/Resolved]
  - Eye pain [Recovered/Resolved]
  - Ear swelling [Not Recovered/Not Resolved]
  - Headache [Recovered/Resolved]
